FAERS Safety Report 13554871 (Version 28)
Quarter: 2019Q4

REPORT INFORMATION
  Report Type: Spontaneous
  Country: US (occurrence: US)
  Receive Date: 20170517
  Receipt Date: 20191108
  Transmission Date: 20200122
  Serious: Yes (Hospitalization)
  Sender: FDA-Public Use
  Company Number: US-ACTELION-A-US2017-153904

PATIENT
  Age: 53 Year
  Sex: Male
  Weight: 94.79 kg

DRUGS (10)
  1. TORSEMIDE. [Concomitant]
     Active Substance: TORSEMIDE
     Dosage: 40 MG, BID
  2. ORENITRAM [Suspect]
     Active Substance: TREPROSTINIL
     Indication: PRODUCT USED FOR UNKNOWN INDICATION
     Dosage: UNK
     Route: 065
  3. REVATIO [Concomitant]
     Active Substance: SILDENAFIL CITRATE
  4. TRACLEER [Suspect]
     Active Substance: BOSENTAN
     Indication: PULMONARY ARTERIAL HYPERTENSION
     Dosage: 125 MG, BID
     Route: 048
     Dates: start: 200507
  5. TRACLEER [Suspect]
     Active Substance: BOSENTAN
     Dosage: 125 MG, QD
     Route: 048
  6. REMODULIN [Suspect]
     Active Substance: TREPROSTINIL
     Indication: PRODUCT USED FOR UNKNOWN INDICATION
     Dosage: 94 NG/KG, PER MIN
     Route: 042
  7. ADCIRCA [Concomitant]
     Active Substance: TADALAFIL
     Dosage: 40 MG, QD
     Dates: start: 201507
  8. ORENITRAM [Suspect]
     Active Substance: TREPROSTINIL
     Dosage: 5 MG, TID
     Route: 065
  9. ORENITRAM [Suspect]
     Active Substance: TREPROSTINIL
     Dosage: 5 MG, BID
     Route: 065
  10. REMODULIN [Suspect]
     Active Substance: TREPROSTINIL
     Dosage: 96 NG
     Route: 042
     Dates: start: 20190412

REACTIONS (32)
  - Atrial flutter [Recovered/Resolved]
  - Perforated ulcer [Unknown]
  - Blood creatinine increased [Unknown]
  - Abdominal discomfort [Unknown]
  - Atrial fibrillation [Unknown]
  - Renal failure [Not Recovered/Not Resolved]
  - Right ventricular failure [Recovered/Resolved]
  - Chronic kidney disease [Recovering/Resolving]
  - Drug intolerance [Unknown]
  - Flushing [Unknown]
  - Diarrhoea [Unknown]
  - Dyspepsia [Recovering/Resolving]
  - Dyspnoea exertional [Unknown]
  - Pulmonary arterial hypertension [Unknown]
  - Acute kidney injury [Recovering/Resolving]
  - Dyspnoea [Unknown]
  - Swelling [Unknown]
  - Dizziness [Recovering/Resolving]
  - Catheterisation cardiac [Unknown]
  - Appetite disorder [Unknown]
  - Urinary retention [Unknown]
  - Hospitalisation [Unknown]
  - Abdominal distension [Unknown]
  - Palpitations [Unknown]
  - Fluid retention [Recovered/Resolved]
  - Oedema [Unknown]
  - Oedema peripheral [Unknown]
  - Feeling abnormal [Unknown]
  - Incorrect dose administered [Unknown]
  - Condition aggravated [Unknown]
  - Fluid overload [Recovering/Resolving]
  - Myalgia [Unknown]

NARRATIVE: CASE EVENT DATE: 20180615
